FAERS Safety Report 13356017 (Version 2)
Quarter: 2017Q2

REPORT INFORMATION
  Report Type: Spontaneous
  Country: MA (occurrence: MA)
  Receive Date: 20170321
  Receipt Date: 20170516
  Transmission Date: 20170830
  Serious: Yes (Other)
  Sender: FDA-Public Use
  Company Number: MA-EMD SERONO-8148692

PATIENT
  Age: 33 Year
  Sex: Male

DRUGS (2)
  1. REBIF [Suspect]
     Active Substance: INTERFERON BETA-1A
     Dosage: REINTRODUCED
  2. REBIF [Suspect]
     Active Substance: INTERFERON BETA-1A
     Indication: PRODUCT USED FOR UNKNOWN INDICATION
     Route: 058
     Dates: start: 20161206, end: 20170203

REACTIONS (2)
  - Inappropriate schedule of drug administration [Unknown]
  - Vitreous haemorrhage [Unknown]

NARRATIVE: CASE EVENT DATE: 20170203
